FAERS Safety Report 9403473 (Version 1)
Quarter: 2013Q3

REPORT INFORMATION
  Report Type: Report from Study
  Country: FR (occurrence: FR)
  Receive Date: 20130716
  Receipt Date: 20130716
  Transmission Date: 20140515
  Serious: Yes (Other)
  Sender: FDA-Public Use
  Company Number: PHHY2012FR128800

PATIENT
  Sex: 0

DRUGS (1)
  1. RASILEZ [Suspect]
     Dosage: UNK UKN, UNK

REACTIONS (1)
  - Acute coronary syndrome [Unknown]
